FAERS Safety Report 19205813 (Version 3)
Quarter: 2022Q3

REPORT INFORMATION
  Report Type: Spontaneous
  Country: US (occurrence: None)
  Receive Date: 20210503
  Receipt Date: 20220907
  Transmission Date: 20221027
  Serious: No
  Sender: FDA-Public Use
  Company Number: US-FARMAPROD-202103-0395

PATIENT
  Age: 63 Year
  Sex: Female

DRUGS (22)
  1. OXERVATE [Suspect]
     Active Substance: CENEGERMIN-BKBJ
     Indication: Neurotrophic keratopathy
     Route: 047
     Dates: start: 20210311, end: 20210506
  2. OXERVATE [Suspect]
     Active Substance: CENEGERMIN-BKBJ
     Route: 047
     Dates: start: 20210518, end: 20210713
  3. OXERVATE [Suspect]
     Active Substance: CENEGERMIN-BKBJ
     Route: 047
     Dates: start: 20211118, end: 20220113
  4. SYSTANE GEL [Concomitant]
     Dosage: 0.3%-0.4%
  5. ERYTHROMYCIN [Concomitant]
     Active Substance: ERYTHROMYCIN
  6. ALOE VERA LEAF [Concomitant]
     Active Substance: ALOE VERA LEAF
     Dates: start: 20200101
  7. METHYLPREDNISOLONE [Concomitant]
     Active Substance: METHYLPREDNISOLONE
  8. XIIDRA [Concomitant]
     Active Substance: LIFITEGRAST
     Dates: start: 20211117
  9. DOXYCYCLINE HYCLATE [Concomitant]
     Active Substance: DOXYCYCLINE HYCLATE
  10. MELATONIN [Concomitant]
     Active Substance: MELATONIN
     Dates: start: 20200618
  11. INDOMETHACIN [Concomitant]
     Active Substance: INDOMETHACIN
     Route: 048
     Dates: start: 20201016
  12. CEVIMELINE HYDROCHLORIDE [Concomitant]
     Active Substance: CEVIMELINE HYDROCHLORIDE
  13. LINZESS [Concomitant]
     Active Substance: LINACLOTIDE
     Route: 048
     Dates: start: 20210719
  14. LYRICA [Concomitant]
     Active Substance: PREGABALIN
     Dates: start: 20201016
  15. AUGMENTIN [Concomitant]
     Active Substance: AMOXICILLIN\CLAVULANATE POTASSIUM
     Dosage: 500-125 MG
     Dates: start: 20220111
  16. DEXAMETHASONE\TOBRAMYCIN [Concomitant]
     Active Substance: DEXAMETHASONE\TOBRAMYCIN
  17. POLYMYXIN B/TRIMETHOPRIM [Concomitant]
  18. SICCASAN EYE GEL [Concomitant]
     Dosage: EYE GEL.
  19. HYLO NIGHT [Concomitant]
  20. SUMATRIPTAN SUCCINATE AND NAPROXEN SODIUM [Concomitant]
     Active Substance: NAPROXEN SODIUM\SUMATRIPTAN SUCCINATE
     Dosage: 85-500 MG
     Route: 048
     Dates: start: 20210719
  21. MAGNESIUM [Concomitant]
     Active Substance: MAGNESIUM
     Dates: start: 20200618
  22. DOXYCYCLINE MONOYDRATE [Concomitant]
     Route: 048
     Dates: start: 20210719

REACTIONS (20)
  - Eye pain [Unknown]
  - Headache [Unknown]
  - Constipation [Unknown]
  - Nausea [Unknown]
  - Eye irritation [Unknown]
  - Tongue erythema [Unknown]
  - Tongue ulceration [Unknown]
  - Stomatitis [Unknown]
  - Ocular hyperaemia [Unknown]
  - Eye irritation [Unknown]
  - Lacrimation increased [Unknown]
  - Eye discharge [Unknown]
  - Foreign body sensation in eyes [Unknown]
  - Vision blurred [Unknown]
  - Eyelid pain [Unknown]
  - Dry eye [Not Recovered/Not Resolved]
  - Eyelid irritation [Not Recovered/Not Resolved]
  - Abnormal sensation in eye [Unknown]
  - Periorbital pain [Unknown]
  - Dacryostenosis acquired [Recovered/Resolved]

NARRATIVE: CASE EVENT DATE: 20210313
